FAERS Safety Report 5698051-2 (Version None)
Quarter: 2008Q2

REPORT INFORMATION
  Report Type: 
  Country: None (occurrence: None)
  Receive Date: 20080408
  Receipt Date: 20080328
  Transmission Date: 20081010
  Serious: Yes (Hospitalization)
  Sender: FDA-Public Use
  Company Number: CH-ROCHE-555979

PATIENT
  Age: 25 Year
  Sex: Male

DRUGS (1)
  1. ROCEPHIN [Suspect]
     Indication: NEISSERIA INFECTION
     Route: 041
     Dates: start: 20080125, end: 20080125

REACTIONS (9)
  - APNOEA [None]
  - BACK PAIN [None]
  - CHEST PAIN [None]
  - FAECES PALE [None]
  - HEADACHE [None]
  - MALAISE [None]
  - NAUSEA [None]
  - PAIN IN EXTREMITY [None]
  - TONIC CONVULSION [None]
